FAERS Safety Report 17158847 (Version 2)
Quarter: 2020Q1

REPORT INFORMATION
  Report Type: Spontaneous
  Country: ES (occurrence: ES)
  Receive Date: 20191216
  Receipt Date: 20200129
  Transmission Date: 20200409
  Serious: Yes (Hospitalization, Other)
  Sender: FDA-Public Use
  Company Number: ES-MYLANLABS-2019M1123923

PATIENT
  Age: 77 Year
  Sex: Male

DRUGS (10)
  1. APOCARD 100 MG, COMPRIMIDOS [Suspect]
     Active Substance: FLECAINIDE ACETATE
     Indication: CARDIAC FAILURE
     Dosage: 1 DOSAGE FORM, QD
     Dates: start: 1992, end: 201812
  2. APOCARD 100 MG, COMPRIMIDOS [Suspect]
     Active Substance: FLECAINIDE ACETATE
     Dosage: 1 DOSAGE FORM, QD
     Dates: end: 201909
  3. IBUPROFENO [Concomitant]
     Active Substance: IBUPROFEN
     Indication: MOBILITY DECREASED
     Dosage: EVERY MORNING AND EVERY NIGHT. SOMETIMES, AT NOON
  4. PARACETAMOL [Concomitant]
     Active Substance: ACETAMINOPHEN
     Indication: BACK PAIN
  5. CLOPIDOGREL [Concomitant]
     Active Substance: CLOPIDOGREL BISULFATE
     Indication: ANTICOAGULANT THERAPY
     Dosage: 1 DOSAGE FORM, AT NOON
  6. PARACETAMOL [Concomitant]
     Active Substance: ACETAMINOPHEN
     Indication: MOBILITY DECREASED
     Dosage: EVERY MORNING AND EVERY NIGHT. SOMETIMES, AT NOON
  7. ENALAPRIL [Concomitant]
     Active Substance: ENALAPRIL
     Indication: HYPERTENSION
     Dosage: 1/2 DOSAGE FORM EVERY MORNING AND EVERY NIGHT
  8. TRANGOREX [Suspect]
     Active Substance: AMIODARONE HYDROCHLORIDE
     Indication: PRODUCT USED FOR UNKNOWN INDICATION
     Dosage: UNK
     Dates: end: 201909
  9. LIVAZO [Concomitant]
     Active Substance: PITAVASTATIN CALCIUM
     Indication: BLOOD CHOLESTEROL
     Dosage: EVERY NIGHT
  10. IBUPROFENO [Concomitant]
     Active Substance: IBUPROFEN
     Indication: BACK PAIN

REACTIONS (13)
  - Syncope [Not Recovered/Not Resolved]
  - Arthropathy [Not Recovered/Not Resolved]
  - Amnesia [Not Recovered/Not Resolved]
  - Musculoskeletal stiffness [Not Recovered/Not Resolved]
  - Medication error [Not Recovered/Not Resolved]
  - Scoliosis [Not Recovered/Not Resolved]
  - Renal injury [Not Recovered/Not Resolved]
  - Gait disturbance [Not Recovered/Not Resolved]
  - Dizziness [Not Recovered/Not Resolved]
  - Tremor [Not Recovered/Not Resolved]
  - Liver injury [Not Recovered/Not Resolved]
  - Lung disorder [Not Recovered/Not Resolved]
  - Myalgia [Not Recovered/Not Resolved]

NARRATIVE: CASE EVENT DATE: 2016
